FAERS Safety Report 9510070 (Version 2)
Quarter: 2013Q3

REPORT INFORMATION
  Report Type: Spontaneous
  Country: US (occurrence: US)
  Receive Date: 20130909
  Receipt Date: 20130909
  Transmission Date: 20140515
  Serious: No
  Sender: FDA-Public Use
  Company Number: US-BRISTOL-MYERS SQUIBB COMPANY-17129487

PATIENT
  Age: 22 Year
  Sex: Male

DRUGS (4)
  1. ABILIFY TABS [Suspect]
     Indication: PSYCHOTIC DISORDER
     Dosage: DOSE INCREASED: FROM 10MG TO 20MG ON 09NOV2012.
     Dates: start: 20121106
  2. HALDOL [Suspect]
  3. RISPERDAL [Suspect]
  4. STRATTERA [Concomitant]

REACTIONS (2)
  - Galactorrhoea [Unknown]
  - Drug ineffective [Unknown]
